FAERS Safety Report 17818291 (Version 1)
Quarter: 2020Q2

REPORT INFORMATION
  Report Type: Spontaneous
  Country: GB (occurrence: GB)
  Receive Date: 20200522
  Receipt Date: 20200522
  Transmission Date: 20200714
  Serious: Yes (Other)
  Sender: FDA-Public Use
  Company Number: GB-NAPPMUNDI-GBR-2020-0076797

PATIENT
  Age: 89 Year
  Sex: Male
  Weight: 72 kg

DRUGS (6)
  1. LANSOPRAZOLE. [Concomitant]
     Active Substance: LANSOPRAZOLE
     Dosage: 1 DF, DAILY [TAKE ONCE DAILY]
     Route: 065
     Dates: start: 20200116
  2. OLANZAPINE. [Concomitant]
     Active Substance: OLANZAPINE
     Dosage: 1 DF, DAILY
     Route: 065
     Dates: start: 20200116
  3. COCODAMOL [Concomitant]
     Active Substance: ACETAMINOPHEN\CODEINE PHOSPHATE
     Dosage: 2 DF, QID [TO BE TAKEN FOUR TIMES A DAY]
     Route: 065
     Dates: start: 20200116
  4. OXYCODONE HYDROCHLORIDE. [Suspect]
     Active Substance: OXYCODONE HYDROCHLORIDE
     Indication: PRODUCT USED FOR UNKNOWN INDICATION
     Dosage: [STRENGTH 5MG/5ML ]
     Route: 065
     Dates: start: 20200427
  5. OXYNORM [Concomitant]
     Active Substance: OXYCODONE HYDROCHLORIDE
     Dosage: 2.5 ML, DAILY [TAKE BEFORE SHOWERING AND BEFORE ...]
     Route: 065
     Dates: start: 20200304
  6. FENBID [Concomitant]
     Active Substance: IBUPROFEN
     Indication: PAIN
     Dosage: 1 DF, TID [APPLY 3 TIMES PER DAY] [ALSO REPORTED AS NEEDED]
     Route: 065
     Dates: start: 20200116

REACTIONS (3)
  - Hallucination, visual [Recovered/Resolved]
  - Dry mouth [Unknown]
  - Tachycardia [Unknown]

NARRATIVE: CASE EVENT DATE: 20200427
